FAERS Safety Report 4906624-7 (Version None)
Quarter: 2006Q1

REPORT INFORMATION
  Report Type: 
  Country: None (occurrence: None)
  Receive Date: 20060209
  Receipt Date: 20060202
  Transmission Date: 20060701
  Serious: Yes (Other)
  Sender: FDA-Public Use
  Company Number: GB-GLAXOSMITHKLINE-B0408894A

PATIENT
  Age: 67 Year
  Sex: Male
  Weight: 81 kg

DRUGS (3)
  1. ZYBAN [Suspect]
     Dosage: 150MG PER DAY
     Route: 048
     Dates: start: 20050810, end: 20050817
  2. ASPIRIN [Concomitant]
     Dosage: 75MG PER DAY
     Route: 048
     Dates: start: 20020101
  3. PRAVASTATIN [Concomitant]
     Dosage: 40MG PER DAY
     Route: 048
     Dates: start: 20020101

REACTIONS (1)
  - NEPHROCALCINOSIS [None]
